FAERS Safety Report 7155867-3 (Version None)
Quarter: 2010Q4

REPORT INFORMATION
  Report Type: 
  Country: None (occurrence: None)
  Receive Date: 20101214
  Receipt Date: 20101130
  Transmission Date: 20110411
  Serious: Yes (Hospitalization)
  Sender: FDA-Public Use
  Company Number: US-PFIZER INC-2010170086

PATIENT
  Sex: Female

DRUGS (5)
  1. SERTRALINE HYDROCHLORIDE [Suspect]
     Indication: MAJOR DEPRESSION
     Dosage: 50 MG, 1X/DAY
     Dates: start: 20070904, end: 20070924
  2. SERTRALINE HYDROCHLORIDE [Suspect]
     Dosage: 100 MG, 1X/DAY
     Dates: start: 20070925, end: 20080613
  3. IBUPROFEN [Suspect]
     Dosage: 200 MG, UNK
     Route: 048
  4. BUSPIRONE [Suspect]
     Indication: ANXIETY
     Dosage: 5 MG, 2X/DAY
     Dates: start: 20070925, end: 20080613
  5. QUETIAPINE [Suspect]
     Indication: INSOMNIA
     Dosage: 25 MG, 1X/DAY
     Dates: start: 20070925, end: 20080714

REACTIONS (9)
  - AGITATION [None]
  - CONFUSIONAL STATE [None]
  - HALLUCINATION, AUDITORY [None]
  - HYPERSEXUALITY [None]
  - INSOMNIA [None]
  - INTENTIONAL OVERDOSE [None]
  - MANIA [None]
  - PARANOIA [None]
  - SUICIDE ATTEMPT [None]
